FAERS Safety Report 10846999 (Version 5)
Quarter: 2015Q2

REPORT INFORMATION
  Report Type: Spontaneous
  Country: JP (occurrence: JP)
  Receive Date: 20150220
  Receipt Date: 20150615
  Transmission Date: 20150821
  Serious: Yes (Life-Threatening, Hospitalization, Disabling, Other)
  Sender: FDA-Public Use
  Company Number: JP-PFIZER INC-2015061846

PATIENT
  Age: 56 Year
  Sex: Female
  Weight: 58 kg

DRUGS (13)
  1. COVERSYL [Concomitant]
     Active Substance: PERINDOPRIL
     Dosage: 2 MG, UNK
     Dates: start: 200804
  2. SERENACE [Concomitant]
     Active Substance: HALOPERIDOL
     Dosage: 3 MG, UNK
     Dates: start: 200804
  3. NESINA [Concomitant]
     Active Substance: ALOGLIPTIN BENZOATE
     Dosage: 25 MG, UNK
     Dates: start: 201404
  4. SEDRENA [Concomitant]
     Active Substance: TRIHEXYPHENIDYL HYDROCHLORIDE
     Dosage: 2 MG, UNK
     Dates: start: 200804
  5. SEIBULE [Concomitant]
     Active Substance: MIGLITOL
     Dosage: 75 MG, UNK
  6. SUGLAT [Suspect]
     Active Substance: IPRAGLIFLOZIN L-PROLINE
     Indication: DIABETES MELLITUS MANAGEMENT
     Dosage: 50 MG, 1X/DAY
     Route: 048
     Dates: start: 20140614, end: 20140809
  7. CONTOMIN [Concomitant]
     Active Substance: CHLORPROMAZINE
     Dosage: 25 MG, UNK
     Dates: start: 2008
  8. EBRANTIL [Concomitant]
     Active Substance: URAPIDIL
     Dosage: UNK
  9. GLIMEPIRIDE. [Concomitant]
     Active Substance: GLIMEPIRIDE
     Indication: TYPE 2 DIABETES MELLITUS
     Dosage: UNK
     Dates: end: 201406
  10. METGLUCO [Concomitant]
     Active Substance: METFORMIN HYDROCHLORIDE
     Indication: TYPE 2 DIABETES MELLITUS
     Dosage: 250 MG, UNK
     Dates: start: 201404
  11. RISPERDAL [Concomitant]
     Active Substance: RISPERIDONE
     Dosage: 1 MG, UNK
     Dates: start: 200804
  12. LIPITOR [Suspect]
     Active Substance: ATORVASTATIN CALCIUM
     Indication: LIPID METABOLISM DISORDER
     Dosage: UNK
     Route: 048
     Dates: end: 20140809
  13. PURSENNID [Concomitant]
     Active Substance: SENNOSIDES A AND B
     Dosage: 12 MG, UNK

REACTIONS (4)
  - Acute kidney injury [Recovered/Resolved]
  - Rhabdomyolysis [Recovered/Resolved]
  - Escherichia sepsis [Recovered/Resolved]
  - Pyelonephritis [Recovered/Resolved]

NARRATIVE: CASE EVENT DATE: 20140809
